FAERS Safety Report 24119713 (Version 3)
Quarter: 2024Q3

REPORT INFORMATION
  Report Type: Report from Study
  Country: BR (occurrence: BR)
  Receive Date: 20240722
  Receipt Date: 20240820
  Transmission Date: 20241016
  Serious: Yes (Hospitalization, Other)
  Sender: ABBVIE
  Company Number: BR-ABBVIE-5839389

PATIENT
  Sex: Female

DRUGS (29)
  1. BOTOX [Suspect]
     Active Substance: ONABOTULINUMTOXINA
     Indication: Migraine
     Dosage: TIME INTERVAL: AS NECESSARY
     Route: 065
     Dates: start: 1999, end: 1999
  2. BOTOX [Suspect]
     Active Substance: ONABOTULINUMTOXINA
     Indication: Migraine
     Dosage: TIME INTERVAL: AS NECESSARY
     Route: 065
     Dates: start: 2020, end: 2020
  3. BOTOX [Suspect]
     Active Substance: ONABOTULINUMTOXINA
     Indication: Migraine
     Dosage: TIME INTERVAL: AS NECESSARY
     Route: 065
     Dates: start: 202406, end: 202406
  4. TRAMADOL [Suspect]
     Active Substance: TRAMADOL\TRAMADOL HYDROCHLORIDE
     Indication: Product used for unknown indication
     Route: 065
  5. TENOXICAM [Concomitant]
     Active Substance: TENOXICAM
     Indication: Product used for unknown indication
  6. QUETIAPINE [Concomitant]
     Active Substance: QUETIAPINE
     Indication: Sleep disorder
     Dosage: FORM STRENGTH: 25 MILLIGRAM
     Route: 048
     Dates: start: 202405
  7. QUETIAPINE [Concomitant]
     Active Substance: QUETIAPINE
     Indication: Sleep disorder
     Dosage: FORM STRENGTH: 2 MILLIGRAM?FREQUENCY TEXT: 1 TABLET AT NIGHT
  8. DIMENHYDRINATE [Suspect]
     Active Substance: DIMENHYDRINATE
     Indication: Product used for unknown indication
     Route: 065
  9. PROPRANOLOL [Concomitant]
     Active Substance: PROPRANOLOL HYDROCHLORIDE
     Indication: Product used for unknown indication
     Dosage: 2 TABLET
  10. DULOXETINE HYDROCHLORIDE [Concomitant]
     Active Substance: DULOXETINE HYDROCHLORIDE
     Indication: Anxiety
     Dosage: FORM STRENGTH: 60 MILLIGRAM
     Route: 048
  11. VOXELOTOR [Concomitant]
     Active Substance: VOXELOTOR
     Indication: Anxiety
     Dosage: FORM STRENGTH: 5 MILLIGRAM?START DATE TEXT: ABOUT 4 MONTHS AGO
     Route: 048
     Dates: start: 202404
  12. SUMATRIPTAN [Suspect]
     Active Substance: SUMATRIPTAN\SUMATRIPTAN SUCCINATE
     Indication: Product used for unknown indication
     Dosage: SEE ADVERSE EVENT DESCRIPTION
  13. SUMATRIPTAN [Suspect]
     Active Substance: SUMATRIPTAN\SUMATRIPTAN SUCCINATE
     Indication: Product used for unknown indication
     Dosage: 1 DOSE
     Route: 045
  14. PREDNISONE [Concomitant]
     Active Substance: PREDNISONE
     Indication: Product used for unknown indication
     Dosage: FORM STRENGTH: 20 MILLIGRAM?4 TABLETS INITIALLY FOR 3 DAYS, THE NUMBER OF TABLETS WAS REDUCED FOR...
  15. FLANAX CAPS [Concomitant]
     Active Substance: NAPROXEN
     Indication: Product used for unknown indication
     Dosage: DOSE: 1200 MILLIGRAM?FORM STRENGTH: 400 MILLIGRAM
     Route: 065
  16. MORPHINE [Concomitant]
     Active Substance: MORPHINE
     Indication: Product used for unknown indication
     Dosage: FORM STRENGTH: 2 MILLIGRAM
  17. KETOPROFEN [Suspect]
     Active Substance: KETOPROFEN
     Indication: Product used for unknown indication
     Route: 065
  18. HALDOL [Suspect]
     Active Substance: HALOPERIDOL
     Indication: Product used for unknown indication
     Route: 065
  19. DEXAMETHASONE [Suspect]
     Active Substance: DEXAMETHASONE
     Indication: Product used for unknown indication
     Route: 065
  20. Sumax [Concomitant]
     Indication: Product used for unknown indication
  21. Sumax [Concomitant]
     Indication: Product used for unknown indication
  22. DIPYRONE [Suspect]
     Active Substance: DIPYRONE
     Indication: Product used for unknown indication
     Route: 065
  23. METOCLOPRAMIDE HYDROCHLORIDE [Suspect]
     Active Substance: METOCLOPRAMIDE HYDROCHLORIDE
     Indication: Product used for unknown indication
     Route: 065
  24. BROMOPRIDE [Suspect]
     Active Substance: BROMOPRIDE
     Indication: Product used for unknown indication
     Route: 065
  25. SUMAXPRO [Concomitant]
     Indication: Product used for unknown indication
     Dosage: SEE ADVERSE EVENT DESCRIPTION
  26. SUMAXPRO [Concomitant]
     Indication: Product used for unknown indication
     Dosage: 1 TABLET WHEN SHE HAD A CRISIS
  27. TOPIRAMATE [Suspect]
     Active Substance: TOPIRAMATE
     Indication: Migraine
     Dosage: 1 TABLET
     Route: 065
  28. TOPIRAMATE [Suspect]
     Active Substance: TOPIRAMATE
     Indication: Migraine
     Dosage: 2 TABLET
     Route: 065
  29. Sumax [Concomitant]
     Indication: Product used for unknown indication
     Dosage: 1 OR 2 APPLICATIONS PER DAY WHEN HOSPITALIZED

REACTIONS (24)
  - Drug abuse [Not Recovered/Not Resolved]
  - Anxiety [Unknown]
  - Extrapyramidal disorder [Unknown]
  - Migraine [Not Recovered/Not Resolved]
  - Extrapyramidal disorder [Unknown]
  - Mental disorder [Unknown]
  - Extrapyramidal disorder [Unknown]
  - Drug hypersensitivity [Unknown]
  - Drug hypersensitivity [Unknown]
  - Extrapyramidal disorder [Unknown]
  - Crush syndrome [Unknown]
  - Extrapyramidal disorder [Unknown]
  - Pruritus [Unknown]
  - Drug hypersensitivity [Unknown]
  - Extrapyramidal disorder [Unknown]
  - Extrapyramidal disorder [Unknown]
  - Extrapyramidal disorder [Unknown]
  - Extrapyramidal disorder [Unknown]
  - Seizure [Recovered/Resolved]
  - Bacterial infection [Recovered/Resolved]
  - Adverse drug reaction [Unknown]
  - Adverse drug reaction [Unknown]
  - Drug hypersensitivity [Unknown]
  - Medical induction of coma [Recovered/Resolved]

NARRATIVE: CASE EVENT DATE: 20090101
